FAERS Safety Report 25736950 (Version 1)
Quarter: 2025Q3

REPORT INFORMATION
  Report Type: Spontaneous
  Country: CN (occurrence: CN)
  Receive Date: 20250828
  Receipt Date: 20250828
  Transmission Date: 20251021
  Serious: Yes (Other)
  Sender: PFIZER
  Company Number: CN-PFIZER INC-PV202500103459

PATIENT
  Age: 63 Year
  Sex: Female

DRUGS (2)
  1. ZYVOX [Suspect]
     Active Substance: LINEZOLID
     Indication: Pneumonia
     Dosage: 600 MG, 2X/DAY
     Route: 041
     Dates: start: 20250730, end: 20250806
  2. CEFOPERAZONE SODIUM\SULBACTAM SODIUM [Suspect]
     Active Substance: CEFOPERAZONE SODIUM\SULBACTAM SODIUM
     Indication: Pneumonia
     Dosage: 1.5 G, 3X/DAY
     Route: 041
     Dates: start: 20250730, end: 20250806

REACTIONS (3)
  - Platelet count decreased [Unknown]
  - Coagulopathy [Unknown]
  - Off label use [Unknown]

NARRATIVE: CASE EVENT DATE: 20250730
